FAERS Safety Report 10005969 (Version 2)
Quarter: 2014Q1

REPORT INFORMATION
  Report Type: Report from Study
  Country: CA (occurrence: CA)
  Receive Date: 20140313
  Receipt Date: 20140313
  Transmission Date: 20141002
  Serious: Yes (Hospitalization)
  Sender: FDA-Public Use
  Company Number: CA-MPIJNJ-2006_02158

PATIENT
  Sex: 0

DRUGS (2)
  1. VELCADE [Suspect]
     Indication: PLASMA CELL MYELOMA
     Dosage: 2.50 MG, UNK
     Route: 042
     Dates: start: 20060626, end: 20060807
  2. DOXIL [Suspect]
     Indication: PLASMA CELL MYELOMA
     Dosage: 59.4 MG, UNK
     Route: 042
     Dates: start: 20060629, end: 20060810

REACTIONS (2)
  - Palmar-plantar erythrodysaesthesia syndrome [Recovered/Resolved with Sequelae]
  - Wound secretion [Not Recovered/Not Resolved]
